FAERS Safety Report 7736728-5 (Version None)
Quarter: 2011Q3

REPORT INFORMATION
  Report Type: 
  Country: None (occurrence: None)
  Receive Date: 20110908
  Receipt Date: 20110829
  Transmission Date: 20111222
  Serious: Yes (Hospitalization)
  Sender: FDA-Public Use
  Company Number: US-BAYER-2011-048398

PATIENT
  Age: 43 Year
  Sex: Female
  Weight: 86.168 kg

DRUGS (10)
  1. TRAMADOL HYDROCHLORIDE [Concomitant]
  2. NSAID'S [Concomitant]
  3. SONATA [Concomitant]
  4. PROMETHAZINE [Concomitant]
  5. YASMIN [Suspect]
     Indication: PRODUCT USED FOR UNKNOWN INDICATION
     Dosage: UNK
     Dates: start: 20030101, end: 20080101
  6. YAZ [Suspect]
     Indication: PRODUCT USED FOR UNKNOWN INDICATION
     Dosage: UNK
     Dates: start: 20030101, end: 20080101
  7. ADVIL LIQUI-GELS [Concomitant]
  8. AZITHROMYCIN [Concomitant]
  9. BENICAR [Concomitant]
  10. MEPERIDINE HCL [Concomitant]

REACTIONS (3)
  - DEEP VEIN THROMBOSIS [None]
  - PAIN [None]
  - INJURY [None]
